FAERS Safety Report 7145171-1 (Version None)
Quarter: 2010Q4

REPORT INFORMATION
  Report Type: 
  Country: None (occurrence: None)
  Receive Date: 20101124
  Receipt Date: 20101012
  Transmission Date: 20110411
  Serious: Yes (Disabling)
  Sender: FDA-Public Use
  Company Number: 2010-1557

PATIENT
  Age: 75 Year
  Sex: Male

DRUGS (4)
  1. APO-GO PFS (APO-GO) (APOMORPHINE HYDROCHLORIDE) (APOMORPHINE HYDROCHLO [Suspect]
     Indication: PARKINSON'S DISEASE
     Dosage: (CONTINUOUS FROM 8:00AM TO 10:30PM), SUBCUTANEOUS
     Route: 058
     Dates: start: 20091204
  2. LEVODOPA (LEVODOPA) [Concomitant]
  3. TASMAR [Concomitant]
  4. REQUIP [Concomitant]

REACTIONS (2)
  - SLEEP DISORDER [None]
  - SPEECH DISORDER [None]
